FAERS Safety Report 4946521-4 (Version None)
Quarter: 2006Q1

REPORT INFORMATION
  Report Type: 
  Country: None (occurrence: None)
  Receive Date: 20060317
  Receipt Date: 20060209
  Transmission Date: 20060701
  Serious: Yes (Hospitalization, Congenital Anomaly, Other)
  Sender: FDA-Public Use
  Company Number: FR-ABBOTT-06P-056-0324524-00

PATIENT
  Sex: Male
  Weight: 1.9 kg

DRUGS (1)
  1. DEPAKENE [Suspect]
     Indication: DRUG EXPOSURE DURING PREGNANCY
     Route: 065

REACTIONS (21)
  - ATRIAL SEPTAL DEFECT [None]
  - CEPHALHAEMATOMA [None]
  - CEREBRAL HAEMORRHAGE NEONATAL [None]
  - CONGENITAL ANOMALY [None]
  - CONGENITAL NOSE MALFORMATION [None]
  - DRUG EXPOSURE DURING PREGNANCY [None]
  - EAR DISORDER [None]
  - EYELID DISORDER [None]
  - FACIAL DYSMORPHISM [None]
  - HYPERTELORISM OF ORBIT [None]
  - HYPOSPADIAS [None]
  - JAUNDICE [None]
  - JAUNDICE NEONATAL [None]
  - LUNG DISORDER [None]
  - NEONATAL RESPIRATORY DISTRESS SYNDROME [None]
  - PREMATURE BABY [None]
  - PREMATURE LABOUR [None]
  - RECTAL HAEMORRHAGE [None]
  - STREPTOCOCCAL INFECTION [None]
  - STRIDOR [None]
  - TRISOMY 21 [None]
